FAERS Safety Report 13377722 (Version 3)
Quarter: 2017Q2

REPORT INFORMATION
  Report Type: Spontaneous
  Country: CH (occurrence: CH)
  Receive Date: 20170328
  Receipt Date: 20170425
  Transmission Date: 20170830
  Serious: Yes (Hospitalization)
  Sender: FDA-Public Use
  Company Number: CH-TEVA-752572ISR

PATIENT
  Age: 70 Year
  Sex: Female
  Weight: 83.5 kg

DRUGS (5)
  1. XARELTO [Concomitant]
     Active Substance: RIVAROXABAN
     Indication: PRODUCT USED FOR UNKNOWN INDICATION
     Route: 048
  2. AMIODARON-MEPHA [Suspect]
     Active Substance: AMIODARONE
     Indication: ATRIAL FIBRILLATION
     Dosage: 100 MILLIGRAM DAILY; START DATE UNKNOWN, BUT SWITCHED FROM 200 MG
     Route: 048
     Dates: start: 201611
  3. RASILEZ [Concomitant]
     Active Substance: ALISKIREN
     Indication: PRODUCT USED FOR UNKNOWN INDICATION
     Route: 048
  4. AMIODARON-MEPHA [Suspect]
     Active Substance: AMIODARONE
     Dosage: 200 MILLIGRAM DAILY; SWITCHED TO 100 MG
     Route: 048
     Dates: start: 201505, end: 201611
  5. ALDACTONE [Concomitant]
     Active Substance: SPIRONOLACTONE
     Indication: PRODUCT USED FOR UNKNOWN INDICATION
     Dosage: .5 DOSAGE FORMS DAILY; 1 DF= 25 MG= 1TBL
     Route: 048

REACTIONS (3)
  - Hallucination [Recovering/Resolving]
  - Persecutory delusion [Recovering/Resolving]
  - Delusion [Recovering/Resolving]

NARRATIVE: CASE EVENT DATE: 20161101
